FAERS Safety Report 25530674 (Version 1)
Quarter: 2025Q3

REPORT INFORMATION
  Report Type: Spontaneous
  Country: GB (occurrence: GB)
  Receive Date: 20250708
  Receipt Date: 20250708
  Transmission Date: 20251020
  Serious: Yes (Disabling, Other)
  Sender: ELI LILLY AND COMPANY
  Company Number: None

PATIENT
  Age: 46 Year
  Sex: Female
  Weight: 101 kg

DRUGS (5)
  1. MOUNJARO [Suspect]
     Active Substance: TIRZEPATIDE
     Indication: Weight control
     Route: 065
  2. MOUNJARO [Suspect]
     Active Substance: TIRZEPATIDE
     Indication: Weight control
     Route: 065
  3. MOUNJARO [Suspect]
     Active Substance: TIRZEPATIDE
     Indication: Weight control
     Route: 065
  4. ADALIMUMAB [Concomitant]
     Active Substance: ADALIMUMAB
     Indication: Psoriasis
     Dates: start: 20240101
  5. ADALIMUMAB [Concomitant]
     Active Substance: ADALIMUMAB
     Indication: Arthritis

REACTIONS (3)
  - Pancreatitis acute [Recovered/Resolved with Sequelae]
  - Autoimmune disorder [Unknown]
  - Nausea [Unknown]

NARRATIVE: CASE EVENT DATE: 20240601
